FAERS Safety Report 6964536-1 (Version None)
Quarter: 2010Q3

REPORT INFORMATION
  Report Type: 
  Country: None (occurrence: None)
  Receive Date: 20100903
  Receipt Date: 20100823
  Transmission Date: 20110219
  Serious: Yes (Hospitalization, Other)
  Sender: FDA-Public Use
  Company Number: PHHY2010US34457

PATIENT
  Sex: Male
  Weight: 25.1 kg

DRUGS (2)
  1. EXJADE [Suspect]
     Indication: SICKLE CELL ANAEMIA
     Dosage: 500 MG, QD
     Route: 048
     Dates: start: 20100410, end: 20100424
  2. EXJADE [Suspect]
     Indication: IRON OVERLOAD
     Dosage: UNK

REACTIONS (3)
  - CEREBROVASCULAR ACCIDENT [None]
  - HEPATIC ENZYME INCREASED [None]
  - SURGERY [None]
